FAERS Safety Report 6890797-3 (Version None)
Quarter: 2010Q3

REPORT INFORMATION
  Report Type: 
  Country: None (occurrence: None)
  Receive Date: 20100731
  Receipt Date: 20090322
  Transmission Date: 20110219
  Serious: No
  Sender: FDA-Public Use
  Company Number: US-PFIZER INC-2009188062

PATIENT
  Sex: Female
  Weight: 72.562 kg

DRUGS (7)
  1. LIPITOR [Suspect]
     Indication: BLOOD CHOLESTEROL
     Dosage: 10 MG, UNK
  2. COZAAR [Concomitant]
     Dosage: UNK
  3. ATENOLOL [Concomitant]
     Dosage: UNK
  4. VITAMINS [Concomitant]
     Dosage: UNK
  5. SYNTHROID [Concomitant]
     Dosage: UNK
  6. NICOTINIC ACID [Concomitant]
     Dosage: UNK
  7. EVISTA [Concomitant]
     Dosage: UNK

REACTIONS (1)
  - MUSCLE DISORDER [None]
